FAERS Safety Report 4484805-7 (Version None)
Quarter: 2004Q4

REPORT INFORMATION
  Report Type: 
  Country: None (occurrence: None)
  Receive Date: 20041025
  Receipt Date: 20041019
  Transmission Date: 20050328
  Serious: Yes (Disabling)
  Sender: FDA-Public Use
  Company Number: GB-MERCK-0410GBR00211

PATIENT
  Age: 70 Year
  Sex: Female

DRUGS (5)
  1. VIOXX [Suspect]
     Indication: BACK PAIN
     Route: 048
     Dates: start: 20040304, end: 20040324
  2. VIOXX [Suspect]
     Route: 048
     Dates: start: 20040325
  3. VIOXX [Suspect]
     Indication: ARTHRALGIA
     Route: 048
     Dates: start: 20040304, end: 20040324
  4. VIOXX [Suspect]
     Route: 048
     Dates: start: 20040325
  5. ACETAMINOPHEN AND CODEINE PHOSPHATE [Concomitant]
     Route: 048

REACTIONS (2)
  - DEAFNESS [None]
  - TINNITUS [None]
